FAERS Safety Report 14253679 (Version 1)
Quarter: 2017Q4

REPORT INFORMATION
  Report Type: Spontaneous
  Country: US (occurrence: US)
  Receive Date: 20171206
  Receipt Date: 20171206
  Transmission Date: 20180321
  Serious: Yes (Death)
  Sender: FDA-Public Use
  Company Number: US-CIPLA (EU) LIMITED-2016US10575

PATIENT

DRUGS (13)
  1. AMLODIPINE BESYLATE. [Suspect]
     Active Substance: AMLODIPINE BESYLATE
     Dosage: UNK
     Route: 048
     Dates: end: 2007
  2. LISINOPRIL. [Suspect]
     Active Substance: LISINOPRIL
     Dosage: UNK
     Route: 048
     Dates: end: 2007
  3. ATORVASTATIN [Suspect]
     Active Substance: ATORVASTATIN
     Dosage: UNK
     Route: 048
  4. METOPROLOL. [Suspect]
     Active Substance: METOPROLOL
     Dosage: UNK
     Route: 048
     Dates: end: 2007
  5. CLOPIDOGREL [Suspect]
     Active Substance: CLOPIDOGREL BISULFATE
     Dosage: UNK
     Route: 048
  6. EZETIMIBE. [Suspect]
     Active Substance: EZETIMIBE
     Dosage: UNK
     Route: 048
  7. PHENYTOIN. [Suspect]
     Active Substance: PHENYTOIN
     Dosage: UNK
     Route: 048
  8. SALICYLATE SODIUM [Suspect]
     Active Substance: SODIUM SALICYLATE
     Dosage: UNK
     Route: 048
  9. TIAGABINE [Suspect]
     Active Substance: TIAGABINE
     Dosage: UNK
     Route: 048
  10. RANITIDINE. [Suspect]
     Active Substance: RANITIDINE
     Dosage: UNK
     Route: 048
     Dates: end: 2007
  11. LORAZEPAM. [Suspect]
     Active Substance: LORAZEPAM
     Dosage: UNK
     Route: 048
     Dates: end: 2007
  12. CLONIDINE. [Suspect]
     Active Substance: CLONIDINE
     Dosage: UNK
     Route: 048
     Dates: end: 2007
  13. SALBUTAMOL [Suspect]
     Active Substance: ALBUTEROL
     Dosage: UNK
     Route: 048
     Dates: end: 2007

REACTIONS (2)
  - Toxicity to various agents [Fatal]
  - Completed suicide [Fatal]

NARRATIVE: CASE EVENT DATE: 2007
